FAERS Safety Report 15265106 (Version 2)
Quarter: 2018Q3

REPORT INFORMATION
  Report Type: Other
  Country: TR (occurrence: TR)
  Receive Date: 20180810
  Receipt Date: 20180822
  Transmission Date: 20181010
  Serious: Yes (Death, Congenital Anomaly)
  Sender: FDA-Public Use
  Company Number: TR-OSMOTICA_PHARMACEUTICAL_US_LLC-POI0573201800180

PATIENT
  Sex: Female
  Weight: 1.88 kg

DRUGS (1)
  1. VENLAFAXINE [Suspect]
     Active Substance: VENLAFAXINE HYDROCHLORIDE
     Indication: EXPOSURE DURING PREGNANCY
     Route: 064

REACTIONS (10)
  - Female genital tract fistula [Not Recovered/Not Resolved]
  - Limb deformity [Not Recovered/Not Resolved]
  - Cardiac arrest [Fatal]
  - Oesophageal atresia [Not Recovered/Not Resolved]
  - Foetal growth restriction [Not Recovered/Not Resolved]
  - Adactyly [Not Recovered/Not Resolved]
  - Limb malformation [Not Recovered/Not Resolved]
  - Anal atresia [Not Recovered/Not Resolved]
  - Patent ductus arteriosus [Not Recovered/Not Resolved]
  - Tracheo-oesophageal fistula [Not Recovered/Not Resolved]

NARRATIVE: CASE EVENT DATE: 2017
